FAERS Safety Report 26119685 (Version 1)
Quarter: 2025Q4

REPORT INFORMATION
  Report Type: Spontaneous
  Country: US (occurrence: None)
  Receive Date: 20251204
  Receipt Date: 20251204
  Transmission Date: 20260118
  Serious: Yes (Other)
  Sender: APOTEX
  Company Number: US-APOTEX-2025AP033230

PATIENT
  Sex: Female
  Weight: 70.3 kg

DRUGS (8)
  1. BUPROPION [Interacting]
     Active Substance: BUPROPION
     Indication: Major depression
     Dosage: 100 MILLIGRAM
  2. BUPROPION [Interacting]
     Active Substance: BUPROPION
     Dosage: 150 MILLIGRAM
  3. BUPROPION [Interacting]
     Active Substance: BUPROPION
     Dosage: 100 MILLIGRAM
  4. REXULTI [Interacting]
     Active Substance: BREXPIPRAZOLE
     Indication: Major depression
     Dosage: 1 MILLIGRAM
     Route: 065
  5. REXULTI [Interacting]
     Active Substance: BREXPIPRAZOLE
     Dosage: 2 MILLIGRAM
     Route: 065
  6. REXULTI [Interacting]
     Active Substance: BREXPIPRAZOLE
     Dosage: 1 MILLIGRAM
     Route: 065
  7. VENLAFAXINE [Concomitant]
     Active Substance: VENLAFAXINE HYDROCHLORIDE
     Indication: Product used for unknown indication
     Dosage: UNK
     Route: 065
  8. GABAPENTIN [Concomitant]
     Active Substance: GABAPENTIN
     Indication: Product used for unknown indication
     Dosage: UNK
     Route: 065

REACTIONS (2)
  - Tardive dyskinesia [Not Recovered/Not Resolved]
  - Drug interaction [Unknown]

NARRATIVE: CASE EVENT DATE: 20250101
